FAERS Safety Report 16733760 (Version 1)
Quarter: 2019Q3

REPORT INFORMATION
  Report Type: Spontaneous
  Country: US (occurrence: US)
  Receive Date: 20190823
  Receipt Date: 20190823
  Transmission Date: 20191005
  Serious: No
  Sender: FDA-Public Use
  Company Number: US-PAREXEL-2018US012086

PATIENT

DRUGS (4)
  1. NEXIUM [Concomitant]
     Active Substance: ESOMEPRAZOLE MAGNESIUM
  2. CIALIS [Concomitant]
     Active Substance: TADALAFIL
  3. LOSARTAN. [Concomitant]
     Active Substance: LOSARTAN
  4. ELIGARD [Suspect]
     Active Substance: LEUPROLIDE ACETATE
     Indication: PROSTATE CANCER
     Dosage: 45 MG, 6 MONTH DOSE
     Route: 058
     Dates: start: 20181129

REACTIONS (2)
  - Intercepted medication error [Unknown]
  - Product leakage [Unknown]

NARRATIVE: CASE EVENT DATE: 20181129
